FAERS Safety Report 5289178-8 (Version None)
Quarter: 2007Q1

REPORT INFORMATION
  Report Type: 
  Country: None (occurrence: None)
  Receive Date: 20070119
  Receipt Date: 20051229
  Transmission Date: 20070707
  Serious: Yes (Other)
  Sender: FDA-Public Use
  Company Number: BDI-007829

PATIENT
  Age: 15 Year
  Sex: Female

DRUGS (4)
  1. PROHANCE [Suspect]
     Indication: HORMONE LEVEL ABNORMAL
     Dosage: 10 ML ONCE IV
     Route: 042
     Dates: start: 20051222, end: 20051222
  2. PROHANCE [Suspect]
     Indication: NUCLEAR MAGNETIC RESONANCE IMAGING BRAIN
     Dosage: 10 ML ONCE IV
     Route: 042
     Dates: start: 20051222, end: 20051222
  3. FLAGYL /00012501/ [Concomitant]
  4. ANAPROX [Concomitant]

REACTIONS (6)
  - CHEST PAIN [None]
  - DIZZINESS [None]
  - DYSPNOEA [None]
  - ERYTHEMA [None]
  - NAUSEA [None]
  - PHARYNGEAL OEDEMA [None]
